FAERS Safety Report 15858573 (Version 1)
Quarter: 2019Q1

REPORT INFORMATION
  Report Type: Spontaneous
  Country: GB (occurrence: GB)
  Receive Date: 20190123
  Receipt Date: 20190123
  Transmission Date: 20190417
  Serious: Yes (Hospitalization)
  Sender: FDA-Public Use
  Company Number: GB-TEVA-2019-GB-1002374

PATIENT
  Age: 90 Year
  Sex: Female

DRUGS (15)
  1. SIMVASTATIN. [Concomitant]
     Active Substance: SIMVASTATIN
  2. DULOXETINE. [Concomitant]
     Active Substance: DULOXETINE
  3. SALBUTAMOL [Concomitant]
     Active Substance: ALBUTEROL
  4. CLOPIDOGREL [Concomitant]
     Active Substance: CLOPIDOGREL BISULFATE
  5. ISOSORBIDE MONONITRATE. [Concomitant]
     Active Substance: ISOSORBIDE MONONITRATE
  6. HYDROCORTISONE. [Concomitant]
     Active Substance: HYDROCORTISONE
  7. TRAMADOL. [Concomitant]
     Active Substance: TRAMADOL
     Dosage: MODIFIED RELEASE CAPSULES.
  8. PROPRANOLOL [Suspect]
     Active Substance: PROPRANOLOL HYDROCHLORIDE
     Indication: ESSENTIAL TREMOR
     Dates: end: 20181211
  9. ADCAL-D3 [Concomitant]
     Active Substance: CALCIUM CARBONATE\CHOLECALCIFEROL
     Dosage: 750MG/200UNIT CAPLETS.
  10. PARACETAMOL [Concomitant]
     Active Substance: ACETAMINOPHEN
  11. LANSOPRAZOLE. [Concomitant]
     Active Substance: LANSOPRAZOLE
  12. SERETIDE [Concomitant]
     Active Substance: FLUTICASONE PROPIONATE\SALMETEROL XINAFOATE
     Dosage: INHALER.
     Route: 055
  13. LERCANIDIPINE [Concomitant]
     Active Substance: LERCANIDIPINE
  14. ALENDRONIC ACID [Concomitant]
     Active Substance: ALENDRONIC ACID
  15. LOSARTAN. [Concomitant]
     Active Substance: LOSARTAN

REACTIONS (1)
  - Hallucination, visual [Recovered/Resolved]
